FAERS Safety Report 19181887 (Version 3)
Quarter: 2021Q2

REPORT INFORMATION
  Report Type: Report from Study
  Country: BR (occurrence: BR)
  Receive Date: 20210426
  Receipt Date: 20210602
  Transmission Date: 20210717
  Serious: Yes (Other)
  Sender: FDA-Public Use
  Company Number: NVSC2021BR088412

PATIENT
  Sex: Male
  Weight: 53 kg

DRUGS (7)
  1. ENTRESTO [Concomitant]
     Active Substance: SACUBITRIL\VALSARTAN
     Indication: CARDIAC FAILURE
     Dosage: 1 DF, BID (1 IN MORING AND 1 IN NIGHT) SINCE ALMOST 15 DAYS
     Route: 065
  2. SOMALGIN [Concomitant]
     Active Substance: ASPIRIN\DIHYDROXYALUMINUM AMINOACETATE ANHYDROUS\MAGNESIUM CARBONATE
     Indication: PRODUCT USED FOR UNKNOWN INDICATION
     Dosage: 81
     Route: 065
  3. ATENOLOL. [Suspect]
     Active Substance: ATENOLOL
     Indication: PRODUCT USED FOR UNKNOWN INDICATION
     Dosage: UNK
     Route: 065
  4. CONCARDIO [Concomitant]
     Active Substance: BISOPROLOL FUMARATE
     Indication: PRODUCT USED FOR UNKNOWN INDICATION
     Dosage: 1 DF, QD (IN THE MORNING)
     Route: 065
  5. ENALAPRIL [Concomitant]
     Active Substance: ENALAPRIL
     Indication: PRODUCT USED FOR UNKNOWN INDICATION
     Dosage: UNK
     Route: 065
  6. CITONEURIN [Concomitant]
     Active Substance: CYANOCOBALAMIN\PYRIDOXINE HYDROCHLORIDE\THIAMINE
     Indication: PRODUCT USED FOR UNKNOWN INDICATION
     Dosage: 1 DF, QMO (STRENGTH 5000)
     Route: 065
  7. SINVASTATINA [Concomitant]
     Active Substance: SIMVASTATIN
     Indication: PRODUCT USED FOR UNKNOWN INDICATION
     Dosage: UNK
     Route: 065

REACTIONS (14)
  - Negative thoughts [Unknown]
  - Myocardial infarction [Recovered/Resolved]
  - Fatigue [Recovered/Resolved]
  - Stress [Recovering/Resolving]
  - Wheezing [Unknown]
  - Dyspnoea [Recovering/Resolving]
  - Cardiac disorder [Unknown]
  - Anxiety [Recovering/Resolving]
  - Emotional disorder [Recovering/Resolving]
  - Ill-defined disorder [Recovering/Resolving]
  - Peripheral swelling [Recovered/Resolved]
  - Sleep disorder [Recovering/Resolving]
  - Head discomfort [Recovered/Resolved]
  - Malaise [Recovered/Resolved]

NARRATIVE: CASE EVENT DATE: 1996
